FAERS Safety Report 4930315-X (Version None)
Quarter: 2006Q1

REPORT INFORMATION
  Report Type: 
  Country: None (occurrence: None)
  Receive Date: 20060118
  Receipt Date: 20050705
  Transmission Date: 20060701
  Serious: No
  Sender: FDA-Public Use
  Company Number: 2005001273

PATIENT
  Age: 63 Year
  Sex: Female

DRUGS (7)
  1. TARCEVA [Suspect]
     Indication: LUNG NEOPLASM MALIGNANT
     Dosage: 150 MG (QD), ORAL
     Route: 048
  2. XANAX [Concomitant]
  3. EFFEXOR [Concomitant]
  4. MORPHINE [Concomitant]
  5. PERCOCET [Concomitant]
  6. LISINOPRIL [Concomitant]
  7. PROPOXYPHENE HCL [Concomitant]

REACTIONS (1)
  - HYPOAESTHESIA [None]
